FAERS Safety Report 9604041 (Version 1)
Quarter: 2013Q4

REPORT INFORMATION
  Report Type: Other
  Country: GB (occurrence: GB)
  Receive Date: 20131008
  Receipt Date: 20131008
  Transmission Date: 20140711
  Serious: Yes (Other)
  Sender: FDA-Public Use
  Company Number: GB-SUN PHARMACEUTICAL INDUSTRIES LTD-2013SUN04783

PATIENT
  Age: 21 Year
  Sex: Female
  Weight: 68.48 kg

DRUGS (4)
  1. VENLAFAXINE HYDROCHLORIDE 37.5MG TABLET [Suspect]
     Indication: DEPRESSION
     Dosage: 37.5 MG, BID
     Route: 048
     Dates: start: 20130902, end: 20130912
  2. CEPHALEXIN [Concomitant]
  3. DIAZEPAM [Concomitant]
  4. MICROGYNON [Concomitant]

REACTIONS (1)
  - Metrorrhagia [Recovering/Resolving]
